FAERS Safety Report 4837459-1 (Version None)
Quarter: 2005Q4

REPORT INFORMATION
  Report Type: 
  Country: None (occurrence: None)
  Receive Date: 20051128
  Receipt Date: 20051115
  Transmission Date: 20060501
  Serious: Yes (Life-Threatening)
  Sender: FDA-Public Use
  Company Number: DE-JNJFOC-20051103880

PATIENT
  Age: 70 Year
  Sex: Male

DRUGS (7)
  1. RISPERDAL [Suspect]
     Route: 048
  2. RISPERDAL [Suspect]
     Route: 048
  3. RISPERDAL [Suspect]
     Route: 048
  4. RISPERDAL [Suspect]
     Indication: DRUG USE FOR UNKNOWN INDICATION
     Route: 048
  5. DELIX [Concomitant]
     Route: 048
  6. METFORMIN [Concomitant]
     Route: 048
  7. INSULIN [Concomitant]

REACTIONS (3)
  - COLD SWEAT [None]
  - DYSPNOEA [None]
  - HEMIPARESIS [None]
